FAERS Safety Report 21531653 (Version 2)
Quarter: 2022Q4

REPORT INFORMATION
  Report Type: Spontaneous
  Country: SE (occurrence: SE)
  Receive Date: 20221031
  Receipt Date: 20221103
  Transmission Date: 20230113
  Serious: Yes (Life-Threatening)
  Sender: FDA-Public Use
  Company Number: SE-AMGEN-SWESP2022185567

PATIENT
  Age: 54 Year
  Sex: Female

DRUGS (6)
  1. AIMOVIG [Suspect]
     Active Substance: ERENUMAB-AOOE
     Indication: Migraine
     Dosage: 1 DOSAGE FORM, Q4W (1 INJ VAR 4:E VECKA)
     Route: 058
     Dates: start: 20190613, end: 20221005
  2. BUPROPION HYDROCHLORIDE [Concomitant]
     Active Substance: BUPROPION HYDROCHLORIDE
     Indication: Product used for unknown indication
     Dosage: 300 MG (1X1)
     Route: 048
     Dates: start: 20210201
  3. MIRTAZAPINE [Concomitant]
     Active Substance: MIRTAZAPINE
     Indication: Product used for unknown indication
     Dosage: 15 MG (0.5 TN)
     Route: 048
     Dates: start: 20220608
  4. Betolvex [Concomitant]
     Indication: Product used for unknown indication
     Dosage: 1 MG (1X1)
     Route: 048
     Dates: start: 20210922
  5. SUMATRIPTAN [Concomitant]
     Active Substance: SUMATRIPTAN
     Indication: Product used for unknown indication
     Dosage: 50 MG (1 VB)
     Route: 048
     Dates: start: 20180212
  6. Niferex [Concomitant]
     Indication: Product used for unknown indication
     Dosage: 100 MG (1 KAPSEL VAR 2 D)
     Route: 048
     Dates: start: 20220119

REACTIONS (2)
  - Myocardial infarction [Not Recovered/Not Resolved]
  - Coronary artery dissection [Not Recovered/Not Resolved]

NARRATIVE: CASE EVENT DATE: 20221005
